FAERS Safety Report 23895093 (Version 1)
Quarter: 2024Q2

REPORT INFORMATION
  Report Type: Spontaneous
  Country: US (occurrence: US)
  Receive Date: 20240524
  Receipt Date: 20240524
  Transmission Date: 20240716
  Serious: No
  Sender: FDA-Public Use
  Company Number: US-HALEON-2177610

PATIENT

DRUGS (1)
  1. CHAPSTICK CLASSIC MEDICATED [Suspect]
     Active Substance: CAMPHOR (SYNTHETIC)\MENTHOL\PETROLATUM
     Indication: Product used for unknown indication

REACTIONS (1)
  - Chapped lips [Unknown]
